FAERS Safety Report 6084935-2 (Version None)
Quarter: 2009Q1

REPORT INFORMATION
  Report Type: 
  Country: None (occurrence: None)
  Receive Date: 20090220
  Receipt Date: 20090213
  Transmission Date: 20090719
  Serious: Yes (Death, Hospitalization)
  Sender: FDA-Public Use
  Company Number: FR-WYE-G03117909

PATIENT
  Sex: Female
  Weight: 60 kg

DRUGS (1)
  1. GEMTUZUMAB OZOGAMICIN [Suspect]
     Indication: ACUTE MYELOID LEUKAEMIA
     Dosage: 5 MG TOTAL DAILY
     Route: 042
     Dates: start: 20081205, end: 20081211

REACTIONS (5)
  - CEREBRAL HAEMATOMA [None]
  - CEREBRAL HAEMORRHAGE [None]
  - DISEASE PROGRESSION [None]
  - THROMBOCYTOPENIA [None]
  - TREATMENT FAILURE [None]
